FAERS Safety Report 8848575 (Version 1)
Quarter: 2012Q4

REPORT INFORMATION
  Report Type: 
  Country: US (occurrence: US)
  Receive Date: 20121018
  Receipt Date: 20121018
  Transmission Date: 20130627
  Serious: Yes (Other)
  Sender: FDA-Public Use
  Company Number: US-GLAXOSMITHKLINE-B0837176A

PATIENT
  Age: 61 Year
  Sex: Male

DRUGS (5)
  1. PIOGLITAZONE [Suspect]
     Dosage: 45MG per day
     Route: 065
     Dates: start: 20100122
  2. ROSIGLITAZONE MALEATE AND METFORMIN HYDROCHLORIDE [Suspect]
     Route: 065
  3. METFORMIN [Concomitant]
     Dates: start: 20120122
  4. ASPIRIN [Concomitant]
     Indication: STENT PLACEMENT
  5. CLOPIDOGREL [Concomitant]
     Indication: STENT PLACEMENT

REACTIONS (3)
  - Precancerous cells present [Recovered/Resolved]
  - Bladder fibrosis [Unknown]
  - Haematuria [Unknown]
